FAERS Safety Report 8992872 (Version 1)
Quarter: 2013Q1

REPORT INFORMATION
  Report Type: Spontaneous
  Country: US (occurrence: US)
  Receive Date: 20130102
  Receipt Date: 20130102
  Transmission Date: 20140127
  Serious: Yes (Other)
  Sender: FDA-Public Use
  Company Number: US-BAYER-2012-136457

PATIENT
  Sex: Female

DRUGS (1)
  1. MIRENA [Suspect]
     Dosage: 20 MCG/24HR, CONT
     Route: 015
     Dates: start: 201210

REACTIONS (5)
  - Genital haemorrhage [None]
  - Vaginal haemorrhage [Recovered/Resolved]
  - Feeling abnormal [None]
  - Procedural pain [None]
  - Post procedural discomfort [None]
